FAERS Safety Report 6978543-6 (Version None)
Quarter: 2010Q3

REPORT INFORMATION
  Report Type: 
  Country: None (occurrence: None)
  Receive Date: 20100913
  Receipt Date: 20100903
  Transmission Date: 20110219
  Serious: Yes (Other)
  Sender: FDA-Public Use
  Company Number: DE-SANOFI-AVENTIS-2010SA042517

PATIENT
  Age: 69 Year
  Sex: Male

DRUGS (4)
  1. MULTAQ [Suspect]
     Route: 048
  2. THYRONAJOD [Concomitant]
     Indication: HYPERTHYROIDISM
     Route: 048
  3. VALSARTAN/HYDROCHLOROTHIAZIDE [Concomitant]
     Indication: PRODUCT USED FOR UNKNOWN INDICATION
     Route: 065
  4. PRAVASTATIN [Concomitant]
     Indication: PRODUCT USED FOR UNKNOWN INDICATION
     Route: 048

REACTIONS (3)
  - BLOOD CREATININE INCREASED [None]
  - HYPERPARATHYROIDISM [None]
  - HYPOCALCIURIA [None]
